FAERS Safety Report 9287219 (Version 1)
Quarter: 2013Q2

REPORT INFORMATION
  Report Type: Spontaneous
  Country: DE (occurrence: DE)
  Receive Date: 20130513
  Receipt Date: 20130513
  Transmission Date: 20140414
  Serious: Yes (Hospitalization, Other)
  Sender: FDA-Public Use
  Company Number: DE-B.I. PHARMACEUTICALS,INC./RIDGEFIELD-2013-BI-12582GD

PATIENT
  Age: 77 Year
  Sex: Female

DRUGS (4)
  1. PRADAXA [Suspect]
     Indication: ATRIAL FIBRILLATION
     Dosage: 300 MG
     Route: 048
  2. ALTEPLASE [Suspect]
     Indication: CEREBRAL INFARCTION
     Dosage: 60 MG
  3. FLECAINIDE [Concomitant]
  4. BLOOD PRESSURE TABLET [Concomitant]
     Indication: HYPERTENSION
     Route: 048

REACTIONS (3)
  - Treatment failure [Unknown]
  - Cerebral infarction [Unknown]
  - Ecchymosis [Recovered/Resolved]
